FAERS Safety Report 4752734-7 (Version None)
Quarter: 2005Q3

REPORT INFORMATION
  Report Type: 
  Country: None (occurrence: None)
  Receive Date: 20050823
  Receipt Date: 20050622
  Transmission Date: 20060218
  Serious: Yes (Other)
  Sender: FDA-Public Use
  Company Number: 2005091716

PATIENT
  Age: 83 Year
  Sex: Male
  Weight: 74.8435 kg

DRUGS (6)
  1. NORVASC [Suspect]
     Indication: HYPERTENSION
     Dosage: (EVERY DAY), ORAL
     Route: 048
     Dates: start: 20050101
  2. VALSARTAN [Suspect]
     Indication: HYPERTENSION
     Dosage: 80 MG (80 MG,1 IN 1 D), ORAL
     Route: 048
     Dates: start: 20050101
  3. ATENOLOL [Concomitant]
  4. METHYLDOPA [Concomitant]
  5. ASPIRIN [Concomitant]
  6. LIPITOR [Concomitant]

REACTIONS (3)
  - BLOOD PRESSURE SYSTOLIC INCREASED [None]
  - FLUSHING [None]
  - OEDEMA [None]
